FAERS Safety Report 5208883-2 (Version None)
Quarter: 2007Q1

REPORT INFORMATION
  Report Type: 
  Country: None (occurrence: None)
  Receive Date: 20070111
  Receipt Date: 20070111
  Transmission Date: 20070707
  Serious: Yes (Other)
  Sender: FDA-Public Use
  Company Number: None

PATIENT
  Age: 8 Year
  Sex: Male
  Weight: 39.9165 kg

DRUGS (1)
  1. NASONEX [Suspect]
     Indication: HYPERSENSITIVITY
     Dosage: 1 SPRAYEA. NOSTRIL 1X DAY NASAL
     Route: 045
     Dates: start: 20061110, end: 20061213

REACTIONS (4)
  - EPISTAXIS [None]
  - LIP HAEMORRHAGE [None]
  - LIP SWELLING [None]
  - SKIN FISSURES [None]
